FAERS Safety Report 19447647 (Version 1)
Quarter: 2021Q2

REPORT INFORMATION
  Report Type: Spontaneous
  Country: CN (occurrence: CN)
  Receive Date: 20210622
  Receipt Date: 20210622
  Transmission Date: 20210717
  Serious: Yes (Life-Threatening, Hospitalization, Other)
  Sender: FDA-Public Use
  Company Number: CN-MACLEODS PHARMACEUTICALS US LTD-MAC2021031589

PATIENT

DRUGS (8)
  1. ESCITALOPRAM 10MG TABLET [Suspect]
     Active Substance: ESCITALOPRAM OXALATE
     Indication: DEPRESSION
     Dosage: 10 MILLIGRAM, QD, EVERY 1 DAY
     Route: 065
  2. FLUVOXAMINE MALEATE. [Suspect]
     Active Substance: FLUVOXAMINE MALEATE
     Indication: DEPRESSION
     Dosage: 50 MILLIGRAM, QD, EVERY 1 DAY
     Route: 065
  3. ZOPICLONE [Suspect]
     Active Substance: ZOPICLONE
     Dosage: UNK
     Route: 048
  4. OLANZAPINE TABLET [Suspect]
     Active Substance: OLANZAPINE
     Indication: DEPRESSION
     Dosage: 5 MILLIGRAM, QD, EVERY 1 DAY
     Route: 048
  5. ZOPICLONE [Suspect]
     Active Substance: ZOPICLONE
     Indication: DEPRESSION
     Dosage: 3.75 MILLIGRAM, QD, EVERY 1 DAY
     Route: 048
  6. OLANZAPINE TABLET [Suspect]
     Active Substance: OLANZAPINE
     Dosage: UNK
     Route: 048
  7. LORAZEPAM. [Suspect]
     Active Substance: LORAZEPAM
     Indication: DEPRESSION
     Dosage: 1 MILLIGRAM, QD, EVERY 1 DAY
     Route: 065
  8. BUSPIRONE HYDROCHLORIDE. [Suspect]
     Active Substance: BUSPIRONE HYDROCHLORIDE
     Indication: DEPRESSION
     Dosage: 5 MILLIGRAM, TID (8 HOUR)
     Route: 065

REACTIONS (5)
  - Syncope [Recovered/Resolved]
  - Microvascular coronary artery disease [Recovered/Resolved]
  - Cyanosis central [Recovered/Resolved]
  - Myocardial ischaemia [Recovered/Resolved]
  - Cardiac failure chronic [Recovered/Resolved]
